FAERS Safety Report 11864646 (Version 1)
Quarter: 2015Q4

REPORT INFORMATION
  Report Type: Spontaneous
  Country: GB (occurrence: GB)
  Receive Date: 20151223
  Receipt Date: 20151223
  Transmission Date: 20160305
  Serious: Yes (Other)
  Sender: FDA-Public Use
  Company Number: GB-PFIZER INC-2015461311

PATIENT
  Age: 49 Year
  Sex: Male

DRUGS (1)
  1. CHAMPIX [Suspect]
     Active Substance: VARENICLINE TARTRATE
     Dosage: 1 MG, 2X/DAY
     Route: 048
     Dates: start: 20151002, end: 20151123

REACTIONS (2)
  - Dermatitis bullous [Recovered/Resolved with Sequelae]
  - Scar [Unknown]

NARRATIVE: CASE EVENT DATE: 2015
